FAERS Safety Report 12817729 (Version 4)
Quarter: 2019Q2

REPORT INFORMATION
  Report Type: Report from Study
  Country: JP (occurrence: JP)
  Receive Date: 20161006
  Receipt Date: 20190517
  Transmission Date: 20190711
  Serious: Yes (Life-Threatening, Hospitalization, Other)
  Sender: FDA-Public Use
  Company Number: JP-AMGEN-JPNCT2016137230

PATIENT
  Age: 78 Year
  Sex: Female
  Weight: 43 kg

DRUGS (97)
  1. CRAVIT [Suspect]
     Active Substance: LEVOFLOXACIN
     Dosage: 250 MILLIGRAM
     Route: 048
     Dates: start: 20150729, end: 20150804
  2. FLUCONAZOLE. [Suspect]
     Active Substance: FLUCONAZOLE
     Dosage: 100 MILLIGRAM
     Route: 048
     Dates: start: 20160213, end: 20160228
  3. ZOSYN [Suspect]
     Active Substance: PIPERACILLIN SODIUM\TAZOBACTAM SODIUM
     Indication: PRODUCT USED FOR UNKNOWN INDICATION
     Dosage: 9 GRAM
     Route: 065
     Dates: start: 20150608, end: 20150614
  4. ACLACINON [Suspect]
     Active Substance: ACLARUBICIN HYDROCHLORIDE
     Indication: MYELODYSPLASTIC SYNDROME
     Dosage: 18 MILLIGRAM
     Route: 065
     Dates: start: 20151202, end: 20151202
  5. ELCITONIN [Concomitant]
     Active Substance: ELCATONIN
     Indication: HYPERCALCAEMIA
     Dosage: 40 INTERNATIONAL UNIT
     Route: 065
     Dates: start: 20150405, end: 20160314
  6. VIDAZA [Concomitant]
     Active Substance: AZACITIDINE
     Dosage: 65 MILLIGRAM
     Route: 065
     Dates: start: 20150929, end: 20151003
  7. VIDAZA [Concomitant]
     Active Substance: AZACITIDINE
     Dosage: 60 MILLIGRAM
     Route: 065
     Dates: start: 20151027, end: 20151031
  8. VIDAZA [Concomitant]
     Active Substance: AZACITIDINE
     Dosage: 60 MILLIGRAM
     Route: 065
     Dates: start: 20151124, end: 20151126
  9. CYLOCIDE [Concomitant]
     Active Substance: CYTARABINE
     Indication: MYELODYSPLASTIC SYNDROME
     Dosage: 13 MILLIGRAM
     Route: 065
     Dates: start: 20151202, end: 20151202
  10. GASTER [Concomitant]
     Active Substance: FAMOTIDINE
     Indication: PRODUCT USED FOR UNKNOWN INDICATION
     Dosage: 20 MILLIGRAM
     Route: 065
     Dates: start: 20160229, end: 20160315
  11. BISOLVON [Concomitant]
     Active Substance: BROMHEXINE HYDROCHLORIDE
     Indication: PRODUCT USED FOR UNKNOWN INDICATION
     Dosage: 12 MILLIGRAM
     Route: 065
     Dates: start: 20160115, end: 20160204
  12. VASOLANDE [Concomitant]
     Indication: PRODUCT USED FOR UNKNOWN INDICATION
     Dosage: 5 MILLIGRAM
     Route: 042
     Dates: start: 20160305, end: 20160305
  13. FLUCONAZOLE. [Suspect]
     Active Substance: FLUCONAZOLE
     Indication: PRODUCT USED FOR UNKNOWN INDICATION
     Dosage: 100 MILLIGRAM
     Route: 048
     Dates: start: 20151207, end: 20160123
  14. ZOSYN [Suspect]
     Active Substance: PIPERACILLIN SODIUM\TAZOBACTAM SODIUM
     Dosage: 13.5 GRAM
     Route: 065
     Dates: start: 20160113, end: 20160217
  15. ZOSYN [Suspect]
     Active Substance: PIPERACILLIN SODIUM\TAZOBACTAM SODIUM
     Dosage: 13.5 GRAM
     Route: 065
     Dates: start: 20160320
  16. CEFEPIME DIHYDROCHLORIDE [Suspect]
     Active Substance: CEFEPIME HYDROCHLORIDE
     Indication: PYREXIA
     Dosage: 3 GRAM
     Route: 065
     Dates: start: 20150630, end: 20150702
  17. FLAGYL [METRONIDAZOLE BENZOATE] [Suspect]
     Active Substance: METRONIDAZOLE BENZOATE
     Indication: CLOSTRIDIUM DIFFICILE COLITIS
     Dosage: 250 MILLIGRAM
     Route: 048
     Dates: start: 20150701
  18. ELCITONIN [Concomitant]
     Active Substance: ELCATONIN
     Dosage: 40 INTERNATIONAL UNIT
     Route: 065
     Dates: start: 20160113, end: 20160118
  19. ELCITONIN [Concomitant]
     Active Substance: ELCATONIN
     Dosage: 40 INTERNATIONAL UNIT
     Route: 065
     Dates: start: 20160205, end: 20160208
  20. RINDERON (BETAMETHASONE) [Concomitant]
     Active Substance: BETAMETHASONE
     Dosage: 4 MILLIGRAM
     Route: 065
     Dates: start: 20150610, end: 20150614
  21. NEXIUM [Concomitant]
     Active Substance: ESOMEPRAZOLE MAGNESIUM
     Indication: PRODUCT USED FOR UNKNOWN INDICATION
     Dosage: 20 MILLIGRAM
     Route: 048
     Dates: start: 20150330, end: 20150607
  22. MAXIPIME [Suspect]
     Active Substance: CEFEPIME HYDROCHLORIDE
     Indication: PYELONEPHRITIS
     Dosage: 3 GRAM
     Route: 042
     Dates: start: 20150504, end: 20150513
  23. ELCITONIN [Concomitant]
     Active Substance: ELCATONIN
     Indication: HYPERPARATHYROIDISM PRIMARY
     Dosage: 80 INTERNATIONAL UNIT
     Route: 065
     Dates: start: 20150405, end: 20160314
  24. ZOMETA [Concomitant]
     Active Substance: ZOLEDRONIC ACID
     Indication: HYPERPARATHYROIDISM PRIMARY
     Dosage: 3 MILLIGRAM
     Route: 041
     Dates: start: 20150615, end: 20150615
  25. GRANISETRON HYDROCHLORIDE. [Concomitant]
     Active Substance: GRANISETRON HYDROCHLORIDE
     Dosage: 1 MILLIGRAM
     Route: 065
     Dates: start: 20150929, end: 20151003
  26. VIDAZA [Concomitant]
     Active Substance: AZACITIDINE
     Indication: MYELODYSPLASTIC SYNDROME
     Dosage: 100 MILLIGRAM
     Route: 065
     Dates: start: 20150803, end: 20150807
  27. HYDREA [Concomitant]
     Active Substance: HYDROXYUREA
     Indication: MYELODYSPLASTIC SYNDROME
     Dosage: 500 MILLIGRAM
     Route: 048
     Dates: start: 20160218, end: 20160301
  28. AMLODIPINE BESILATE [Concomitant]
     Active Substance: AMLODIPINE BESYLATE
     Indication: PRODUCT USED FOR UNKNOWN INDICATION
     Dosage: 5 MILLIGRAM
     Route: 048
     Dates: start: 20151218, end: 20160228
  29. CINACALCET HCL [Suspect]
     Active Substance: CINACALCET HYDROCHLORIDE
     Dosage: 25 MILLIGRAM, QD
     Route: 048
     Dates: start: 20150813, end: 20160229
  30. VANCOMYCIN HYDROCHLORIDE. [Suspect]
     Active Substance: VANCOMYCIN HYDROCHLORIDE
     Indication: PRODUCT USED FOR UNKNOWN INDICATION
     Dosage: 1 GRAM
     Route: 041
     Dates: start: 20150614, end: 20150626
  31. VANCOMYCIN HYDROCHLORIDE. [Suspect]
     Active Substance: VANCOMYCIN HYDROCHLORIDE
     Dosage: 1.5 GRAM
     Route: 041
     Dates: start: 20160115, end: 20160204
  32. ELCITONIN [Concomitant]
     Active Substance: ELCATONIN
     Dosage: 80 INTERNATIONAL UNIT
     Route: 065
     Dates: start: 20150405, end: 20150406
  33. ELCITONIN [Concomitant]
     Active Substance: ELCATONIN
     Dosage: 80 INTERNATIONAL UNIT
     Route: 065
     Dates: start: 20150610, end: 20150622
  34. GRANISETRON HYDROCHLORIDE. [Concomitant]
     Active Substance: GRANISETRON HYDROCHLORIDE
     Dosage: 1 MILLIGRAM
     Route: 065
     Dates: start: 20151124, end: 20151126
  35. AMBROXOL HYDROCHLORIDE [Concomitant]
     Active Substance: AMBROXOL HYDROCHLORIDE
     Indication: PRODUCT USED FOR UNKNOWN INDICATION
     Dosage: 45 MILLIGRAM
     Route: 048
     Dates: start: 20160124, end: 20160127
  36. HYDREA [Concomitant]
     Active Substance: HYDROXYUREA
     Dosage: 500 MILLIGRAM
     Route: 048
     Dates: start: 20160323
  37. NEXIUM [Concomitant]
     Active Substance: ESOMEPRAZOLE MAGNESIUM
     Dosage: 20 MILLIGRAM
     Route: 048
     Dates: start: 20150707, end: 20160229
  38. PRIMPERAN [Concomitant]
     Active Substance: METOCLOPRAMIDE HYDROCHLORIDE
     Indication: PRODUCT USED FOR UNKNOWN INDICATION
     Dosage: 10 MILLIGRAM
     Route: 065
     Dates: start: 20150401, end: 20150405
  39. NOVOLIN R [Concomitant]
     Active Substance: INSULIN HUMAN
     Indication: PRODUCT USED FOR UNKNOWN INDICATION
     Dosage: UNK
     Route: 058
     Dates: start: 20150615, end: 20150630
  40. FEXOFENADINE HYDROCHLORIDE. [Concomitant]
     Active Substance: FEXOFENADINE HYDROCHLORIDE
     Indication: PRODUCT USED FOR UNKNOWN INDICATION
     Dosage: 120 MILLIGRAM
     Route: 048
     Dates: start: 20150922, end: 20150923
  41. ZOSYN [Suspect]
     Active Substance: PIPERACILLIN SODIUM\TAZOBACTAM SODIUM
     Dosage: 13.5 GRAM
     Route: 065
     Dates: start: 20160229, end: 20160311
  42. CEFEPIME DIHYDROCHLORIDE [Suspect]
     Active Substance: CEFEPIME HYDROCHLORIDE
     Dosage: 3 GRAM
     Route: 065
     Dates: start: 20151202, end: 20151206
  43. BARAMYCIN E [Suspect]
     Active Substance: BACITRACIN\NEOMYCIN SULFATE
     Indication: INFECTED DERMAL CYST
     Dosage: UNK
     Route: 061
     Dates: start: 20150629, end: 20150701
  44. LULICONAZOLE. [Suspect]
     Active Substance: LULICONAZOLE
     Indication: PRODUCT USED FOR UNKNOWN INDICATION
     Dosage: UNK
     Route: 061
     Dates: start: 20150622, end: 20150701
  45. FINIBAX [Suspect]
     Active Substance: DORIPENEM MONOHYDRATE
     Indication: PNEUMONIA
     Dosage: 1.5 GRAM
     Route: 041
     Dates: start: 20150914, end: 20150923
  46. GRACEVIT [Suspect]
     Active Substance: SITAFLOXACIN
     Dosage: 100 MILLIGRAM
     Route: 048
     Dates: start: 20160312, end: 20160320
  47. GRAN [Concomitant]
     Active Substance: FILGRASTIM
     Dosage: 300 MICROGRAM
     Route: 065
     Dates: start: 20151207, end: 20151219
  48. LASIX [Concomitant]
     Active Substance: FUROSEMIDE
     Indication: CARDIAC FAILURE
     Dosage: 20 MILLIGRAM
     Route: 048
     Dates: start: 20150608, end: 20160115
  49. LASIX [Concomitant]
     Active Substance: FUROSEMIDE
     Dosage: 10 MILLIGRAM
     Route: 065
     Dates: start: 20150608, end: 20160115
  50. ELCITONIN [Concomitant]
     Active Substance: ELCATONIN
     Dosage: 40 INTERNATIONAL UNIT
     Route: 065
     Dates: start: 20150703, end: 20150706
  51. ELCITONIN [Concomitant]
     Active Substance: ELCATONIN
     Dosage: 40 INTERNATIONAL UNIT
     Route: 065
     Dates: start: 20150918, end: 20151003
  52. VASOLAN [VERAPAMIL HYDROCHLORIDE] [Concomitant]
     Active Substance: VERAPAMIL HYDROCHLORIDE
     Dosage: 5 MILLIGRAM
     Route: 042
     Dates: start: 20160308, end: 20160308
  53. PRIMPERAN [Concomitant]
     Active Substance: METOCLOPRAMIDE HYDROCHLORIDE
     Dosage: 15 MILLIGRAM
     Route: 048
     Dates: start: 20150406, end: 20150608
  54. MUCODYNE [Concomitant]
     Active Substance: CARBOCYSTEINE
     Indication: PRODUCT USED FOR UNKNOWN INDICATION
     Dosage: 1500 MILLIGRAM
     Route: 048
     Dates: start: 20150331, end: 20150403
  55. CRAVIT [Suspect]
     Active Substance: LEVOFLOXACIN
     Indication: C-REACTIVE PROTEIN INCREASED
     Dosage: 250 MILLIGRAM
     Route: 041
     Dates: start: 20150610, end: 20150624
  56. OZEX [ROFECOXIB] [Suspect]
     Active Substance: ROFECOXIB
     Dosage: 350 MILLIGRAM
     Route: 048
     Dates: start: 20151207
  57. CEFEPIME DIHYDROCHLORIDE [Suspect]
     Active Substance: CEFEPIME HYDROCHLORIDE
     Dosage: 3 GRAM
     Route: 065
     Dates: start: 20160104
  58. MIYA-BM [Suspect]
     Active Substance: CLOSTRIDIUM BUTYRICUM SPORES STRAIN M-55
     Indication: DIARRHOEA
     Dosage: 3 GRAM
     Route: 048
     Dates: start: 20151210, end: 20160112
  59. ELCITONIN [Concomitant]
     Active Substance: ELCATONIN
     Dosage: 80 INTERNATIONAL UNIT
     Route: 065
     Dates: start: 20150413, end: 20150417
  60. ELCITONIN [Concomitant]
     Active Substance: ELCATONIN
     Dosage: 80 INTERNATIONAL UNIT
     Route: 065
     Dates: start: 20150812, end: 20150824
  61. ELCITONIN [Concomitant]
     Active Substance: ELCATONIN
     Dosage: 80 INTERNATIONAL UNIT
     Route: 065
     Dates: start: 20160314
  62. ZOMETA [Concomitant]
     Active Substance: ZOLEDRONIC ACID
     Indication: HYPERCALCAEMIA
  63. MAGNESIUM OXIDE. [Concomitant]
     Active Substance: MAGNESIUM OXIDE
     Indication: PRODUCT USED FOR UNKNOWN INDICATION
     Dosage: 990 MILLIGRAM
     Route: 048
     Dates: start: 20150803, end: 20151122
  64. GRANISETRON HYDROCHLORIDE. [Concomitant]
     Active Substance: GRANISETRON HYDROCHLORIDE
     Dosage: 1 MILLIGRAM
     Route: 065
     Dates: start: 20150831, end: 20150904
  65. PRIMPERAN [Concomitant]
     Active Substance: METOCLOPRAMIDE HYDROCHLORIDE
     Dosage: 15 MILLIGRAM
     Route: 048
     Dates: start: 20150812, end: 20160113
  66. PRIMPERAN [Concomitant]
     Active Substance: METOCLOPRAMIDE HYDROCHLORIDE
     Dosage: UNK
     Route: 065
     Dates: start: 20160229
  67. MEDICONE [BENZOCAINE] [Concomitant]
     Active Substance: BENZOCAINE
     Indication: PRODUCT USED FOR UNKNOWN INDICATION
     Dosage: 45 MILLIGRAM
     Route: 048
     Dates: start: 20150331, end: 20150403
  68. GASMOTIN [Concomitant]
     Active Substance: MOSAPRIDE CITRATE
     Indication: PRODUCT USED FOR UNKNOWN INDICATION
     Dosage: 15 MILLIGRAM
     Route: 048
     Dates: start: 20150401, end: 20150406
  69. OMEPRAZOLE SODIUM [Concomitant]
     Active Substance: OMEPRAZOLE SODIUM
     Indication: PRODUCT USED FOR UNKNOWN INDICATION
     Dosage: 20 MILLIGRAM
     Route: 065
     Dates: start: 20150610, end: 20150702
  70. AZUNOL [GUAIAZULENE] [Concomitant]
     Active Substance: GUAIAZULENE
     Indication: PRODUCT USED FOR UNKNOWN INDICATION
     Dosage: UNK
     Route: 061
     Dates: start: 20150619, end: 20150701
  71. RESTAMIN CORTISONE [Concomitant]
     Active Substance: DIPHENHYDRAMINE HYDROCHLORIDE\HYDROCORTISONE ACETATE\NEOMYCIN SULFATE
     Indication: PRODUCT USED FOR UNKNOWN INDICATION
     Dosage: UNK
     Route: 061
     Dates: start: 20150922, end: 20151003
  72. CINACALCET HCL [Suspect]
     Active Substance: CINACALCET HYDROCHLORIDE
     Indication: HYPERCALCAEMIA
     Dosage: 25 MILLIGRAM, QD
     Route: 048
     Dates: start: 20150416, end: 20150608
  73. CINACALCET HCL [Suspect]
     Active Substance: CINACALCET HYDROCHLORIDE
     Dosage: 25 MILLIGRAM, QD
     Route: 048
     Dates: start: 20160315
  74. CRAVIT [Suspect]
     Active Substance: LEVOFLOXACIN
     Indication: PYREXIA
     Dosage: 500 MILLIGRAM
     Route: 048
     Dates: start: 20150514, end: 20150517
  75. OZEX [ROFECOXIB] [Suspect]
     Active Substance: ROFECOXIB
     Indication: PNEUMONIA
     Dosage: 450 MILLIGRAM
     Route: 048
     Dates: start: 20150923, end: 20151123
  76. CEFEPIME DIHYDROCHLORIDE [Suspect]
     Active Substance: CEFEPIME HYDROCHLORIDE
     Dosage: 3 GRAM
     Route: 065
     Dates: start: 20150715, end: 20150721
  77. CANCIDAS [Suspect]
     Active Substance: CASPOFUNGIN ACETATE
     Indication: PRODUCT USED FOR UNKNOWN INDICATION
     Dosage: UNK
     Route: 041
     Dates: start: 20160123, end: 20160212
  78. GRACEVIT [Suspect]
     Active Substance: SITAFLOXACIN
     Indication: PRODUCT USED FOR UNKNOWN INDICATION
     Dosage: 100 MILLIGRAM
     Route: 048
     Dates: start: 20160218, end: 20160228
  79. ELCITONIN [Concomitant]
     Active Substance: ELCATONIN
     Dosage: 80 INTERNATIONAL UNIT
     Route: 065
     Dates: start: 20150504, end: 20150511
  80. ELCITONIN [Concomitant]
     Active Substance: ELCATONIN
     Dosage: 40 INTERNATIONAL UNIT
     Route: 065
     Dates: start: 20160104, end: 20160108
  81. ELCITONIN [Concomitant]
     Active Substance: ELCATONIN
     Dosage: 40 INTERNATIONAL UNIT
     Route: 065
     Dates: start: 20160126, end: 20160201
  82. ELCITONIN [Concomitant]
     Active Substance: ELCATONIN
     Dosage: UNK
     Route: 065
     Dates: start: 20160304, end: 20160311
  83. VIDAZA [Concomitant]
     Active Substance: AZACITIDINE
     Dosage: 100 MG, UNK
     Route: 065
     Dates: start: 20150831, end: 20150904
  84. CYLOCIDE [Concomitant]
     Active Substance: CYTARABINE
     Dosage: 26 MILLIGRAM
     Route: 065
     Dates: start: 20151207, end: 20151219
  85. VASOLAN [VERAPAMIL HYDROCHLORIDE] [Concomitant]
     Active Substance: VERAPAMIL HYDROCHLORIDE
     Dosage: 5 MILLIGRAM
     Route: 042
     Dates: start: 20160305, end: 20160305
  86. PRIMPERAN [Concomitant]
     Active Substance: METOCLOPRAMIDE HYDROCHLORIDE
     Dosage: 15 MILLIGRAM
     Route: 048
     Dates: start: 20160209, end: 20160228
  87. CINACALCET HCL [Suspect]
     Active Substance: CINACALCET HYDROCHLORIDE
     Indication: HYPERPARATHYROIDISM PRIMARY
     Dosage: 25 MILLIGRAM, BID
     Route: 048
     Dates: start: 20150327, end: 20150330
  88. ROCEPHIN [Suspect]
     Active Substance: CEFTRIAXONE SODIUM
     Indication: PRODUCT USED FOR UNKNOWN INDICATION
     Dosage: 2 GRAM
     Route: 065
     Dates: start: 20150607, end: 20150608
  89. CEFDINIR. [Suspect]
     Active Substance: CEFDINIR
     Indication: PRODUCT USED FOR UNKNOWN INDICATION
     Dosage: 300 MILLIGRAM
     Route: 048
     Dates: start: 20150708, end: 20150714
  90. FINIBAX [Suspect]
     Active Substance: DORIPENEM MONOHYDRATE
     Indication: PYREXIA
     Dosage: 1.5 GRAM
     Route: 041
     Dates: start: 20150819, end: 20150824
  91. ACLACINON [Suspect]
     Active Substance: ACLARUBICIN HYDROCHLORIDE
     Dosage: 18 MILLIGRAM
     Route: 065
     Dates: start: 20151207, end: 20151209
  92. GRAN [Concomitant]
     Active Substance: FILGRASTIM
     Indication: MYELODYSPLASTIC SYNDROME
     Dosage: 300 MICROGRAM
     Route: 065
     Dates: start: 20151202, end: 20151202
  93. GRANISETRON HYDROCHLORIDE. [Concomitant]
     Active Substance: GRANISETRON HYDROCHLORIDE
     Indication: MYELODYSPLASTIC SYNDROME
     Dosage: 1 MILLIGRAM
     Route: 065
     Dates: start: 20150803, end: 20151126
  94. GRANISETRON HYDROCHLORIDE. [Concomitant]
     Active Substance: GRANISETRON HYDROCHLORIDE
     Dosage: 1 MILLIGRAM
     Route: 065
     Dates: start: 20151027, end: 20151031
  95. STARASID [Concomitant]
     Active Substance: CYTARABINE OCFOSFATE
     Indication: MYELODYSPLASTIC SYNDROME
     Dosage: 100 MILLIGRAM
     Route: 048
     Dates: start: 20160310, end: 20160322
  96. FEBURIC [Concomitant]
     Active Substance: FEBUXOSTAT
     Indication: PRODUCT USED FOR UNKNOWN INDICATION
     Dosage: 20 MILLIGRAM
     Route: 048
     Dates: start: 20151216, end: 20160114
  97. CARBOCISTEINE [Concomitant]
     Active Substance: CARBOCYSTEINE
     Indication: PRODUCT USED FOR UNKNOWN INDICATION
     Dosage: 1500 MILLIGRAM
     Route: 048
     Dates: start: 20160205, end: 20160228

REACTIONS (18)
  - Bronchitis [Recovered/Resolved]
  - Hyperuricaemia [Recovering/Resolving]
  - Hypertension [Recovering/Resolving]
  - Pneumonia [Recovering/Resolving]
  - Atrial fibrillation [Recovered/Resolved]
  - C-reactive protein increased [Recovered/Resolved]
  - Leukaemia [Not Recovered/Not Resolved]
  - Constipation [Recovering/Resolving]
  - Nausea [Recovering/Resolving]
  - Infected dermal cyst [Recovering/Resolving]
  - Clostridium difficile colitis [Recovering/Resolving]
  - Drug eruption [Recovering/Resolving]
  - Pyelonephritis [Recovered/Resolved]
  - Pyrexia [Recovered/Resolved]
  - Pneumonia [Recovered/Resolved]
  - Myelodysplastic syndrome transformation [Not Recovered/Not Resolved]
  - Skin candida [Recovering/Resolving]
  - Diarrhoea [Recovered/Resolved]

NARRATIVE: CASE EVENT DATE: 20150328
